FAERS Safety Report 5247763-3 (Version None)
Quarter: 2007Q1

REPORT INFORMATION
  Report Type: 
  Country: None (occurrence: None)
  Receive Date: 20070220
  Receipt Date: 20070206
  Transmission Date: 20070707
  Serious: Yes (Hospitalization)
  Sender: FDA-Public Use
  Company Number: GXKR2007US01476

PATIENT
  Sex: Female
  Weight: 1.6 kg

DRUGS (2)
  1. AZITHROMYCIN [Suspect]
     Indication: PERTUSSIS
     Dosage: 10 MG/KG, QD
  2. LANSOPRAZOLE [Concomitant]

REACTIONS (4)
  - GASTROOESOPHAGEAL REFLUX DISEASE [None]
  - PYLORIC STENOSIS [None]
  - PYLOROMYOTOMY [None]
  - VOMITING [None]
